FAERS Safety Report 14469764 (Version 2)
Quarter: 2018Q1

REPORT INFORMATION
  Report Type: Spontaneous
  Country: US (occurrence: US)
  Receive Date: 20180131
  Receipt Date: 20180212
  Transmission Date: 20180509
  Serious: Yes (Other)
  Sender: FDA-Public Use
  Company Number: US-JNJFOC-20180119141

PATIENT
  Age: 73 Year
  Sex: Female
  Weight: 108.86 kg

DRUGS (9)
  1. CYMBALTA [Concomitant]
     Active Substance: DULOXETINE HYDROCHLORIDE
     Dosage: 100/25 MG
     Route: 065
     Dates: start: 2011
  2. MAGNESIUM [Concomitant]
     Active Substance: MAGNESIUM
     Dosage: 100/25 MG
     Route: 065
     Dates: start: 2011
  3. REMICADE [Suspect]
     Active Substance: INFLIXIMAB
     Indication: RHEUMATOID ARTHRITIS
     Dosage: 5 MG/KG
     Route: 042
     Dates: start: 20111207, end: 20171030
  4. FOLIC ACID. [Concomitant]
     Active Substance: FOLIC ACID
     Route: 065
     Dates: start: 2011
  5. METFORMIN [Concomitant]
     Active Substance: METFORMIN HYDROCHLORIDE
     Route: 065
     Dates: start: 2011
  6. METHOTREXATE. [Concomitant]
     Active Substance: METHOTREXATE
     Dosage: STRENGTH = 20 MG
     Route: 065
     Dates: start: 2011
  7. LOSARTAN AND HYDROCHLOROTHIAZIDE [Concomitant]
     Active Substance: HYDROCHLOROTHIAZIDE\LOSARTAN POTASSIUM
     Dosage: 100/25 MG
     Route: 065
     Dates: start: 2011
  8. LEVOTHYROXINE. [Concomitant]
     Active Substance: LEVOTHYROXINE
     Dosage: 100/25 MG
     Route: 065
     Dates: start: 2011
  9. KLOR-CON [Concomitant]
     Active Substance: POTASSIUM CHLORIDE
     Dosage: 10 MCQ
     Route: 065
     Dates: start: 2011

REACTIONS (6)
  - Lymphadenopathy [Unknown]
  - Arthralgia [Unknown]
  - Myelodysplastic syndrome [Not Recovered/Not Resolved]
  - Pain in extremity [Unknown]
  - Back pain [Unknown]
  - Pulmonary mass [Unknown]

NARRATIVE: CASE EVENT DATE: 2014
